FAERS Safety Report 24002759 (Version 1)
Quarter: 2024Q2

REPORT INFORMATION
  Report Type: Report from Study
  Country: US (occurrence: US)
  Receive Date: 20240624
  Receipt Date: 20240624
  Transmission Date: 20240716
  Serious: Yes (Other)
  Sender: FDA-Public Use
  Company Number: US-ABBVIE-5640081

PATIENT
  Sex: Male

DRUGS (7)
  1. SKYRIZI [Suspect]
     Active Substance: RISANKIZUMAB-RZAA
     Indication: Crohn^s disease
     Dosage: WEEK 12?FORM STRENGTH: 2.4 MILLIGRAM
     Route: 058
     Dates: start: 20230919, end: 20230919
  2. SKYRIZI [Suspect]
     Active Substance: RISANKIZUMAB-RZAA
     Dosage: FORM STRENGTH: 2.4 MILLIGRAM
     Route: 058
  3. SKYRIZI [Suspect]
     Active Substance: RISANKIZUMAB-RZAA
     Dosage: EVERY 8 WEEKS THEREAFTER?FORM STRENGTH: 2.4MILLIGRAM
     Route: 058
     Dates: start: 20231119, end: 20231119
  4. HYDROCODONE [Suspect]
     Active Substance: HYDROCODONE
     Indication: Arthralgia
     Route: 065
  5. SKYRIZI [Suspect]
     Active Substance: RISANKIZUMAB-RZAA
     Indication: Crohn^s disease
     Dosage: WEEK 0?FORM STRENGTH: 600 MILLIGRAM
     Route: 042
     Dates: start: 20230524, end: 20230524
  6. SKYRIZI [Suspect]
     Active Substance: RISANKIZUMAB-RZAA
     Indication: Crohn^s disease
     Dosage: WEEK 4?FORM STRENGTH: 600 MILLIGRAM
     Route: 042
     Dates: start: 20230621, end: 20230621
  7. SKYRIZI [Suspect]
     Active Substance: RISANKIZUMAB-RZAA
     Indication: Crohn^s disease
     Dosage: WEEK 8?FORM STRENGTH: 600 MILLIGRAM
     Route: 042
     Dates: start: 20230801, end: 20230801

REACTIONS (10)
  - Haemorrhoidal haemorrhage [Unknown]
  - Arthralgia [Not Recovered/Not Resolved]
  - Anal sphincterotomy [Unknown]
  - Constipation [Unknown]
  - Frequent bowel movements [Not Recovered/Not Resolved]
  - Insomnia [Not Recovered/Not Resolved]
  - Crohn^s disease [Unknown]
  - Fatigue [Not Recovered/Not Resolved]
  - Asthenia [Not Recovered/Not Resolved]
  - Tissue rupture [Unknown]

NARRATIVE: CASE EVENT DATE: 20240101
